FAERS Safety Report 21036327 (Version 1)
Quarter: 2022Q3

REPORT INFORMATION
  Report Type: Spontaneous
  Country: US (occurrence: US)
  Receive Date: 20220701
  Receipt Date: 20220701
  Transmission Date: 20221027
  Serious: No
  Sender: FDA-Public Use
  Company Number: US-AMGEN-USASP2022106213

PATIENT
  Sex: Female

DRUGS (6)
  1. PROLIA [Suspect]
     Active Substance: DENOSUMAB
     Indication: Open fracture
     Dosage: 60 MILLIGRAM, Q6MO
     Route: 058
     Dates: start: 20200113
  2. PROLIA [Suspect]
     Active Substance: DENOSUMAB
     Indication: Off label use
     Dosage: 60 MILLIGRAM, Q6MO
     Route: 058
     Dates: start: 20200627
  3. LEVOTHYROXINE SODIUM [Concomitant]
     Active Substance: LEVOTHYROXINE SODIUM
     Dosage: 75 MICROGRAM
  4. ASPIRIN [Concomitant]
     Active Substance: ASPIRIN
     Dosage: UNK
  5. CALCIUM [Concomitant]
     Active Substance: CALCIUM
  6. VITAMIN D3 [Concomitant]
     Active Substance: CHOLECALCIFEROL

REACTIONS (2)
  - Back pain [Unknown]
  - Off label use [Unknown]
